FAERS Safety Report 23606299 (Version 1)
Quarter: 2024Q1

REPORT INFORMATION
  Report Type: Spontaneous
  Country: BR (occurrence: BR)
  Receive Date: 20240307
  Receipt Date: 20240307
  Transmission Date: 20240409
  Serious: Yes (Other)
  Sender: FDA-Public Use
  Company Number: BR-UCBSA-2024010907

PATIENT
  Age: 70 Year
  Sex: Female

DRUGS (1)
  1. KEPPRA XR [Suspect]
     Active Substance: LEVETIRACETAM
     Indication: Seizure
     Dosage: 1 GRAM PER DAY

REACTIONS (3)
  - Seizure [Unknown]
  - Colostomy [Unknown]
  - Product residue present [Unknown]
